FAERS Safety Report 7353353-9 (Version None)
Quarter: 2011Q1

REPORT INFORMATION
  Report Type: 
  Country: None (occurrence: None)
  Receive Date: 20110315
  Receipt Date: 20110304
  Transmission Date: 20110831
  Serious: Yes (Other)
  Sender: FDA-Public Use
  Company Number: FI-BRISTOL-MYERS SQUIBB COMPANY-15592249

PATIENT
  Age: 61 Year
  Sex: Female

DRUGS (1)
  1. ONGLYZA [Suspect]
     Indication: TYPE 2 DIABETES MELLITUS
     Dosage: RESTARTED AND THAN REDUCED

REACTIONS (2)
  - HEARING IMPAIRED [None]
  - EAR DISCOMFORT [None]
